FAERS Safety Report 10657499 (Version 1)
Quarter: 2014Q4

REPORT INFORMATION
  Report Type: Spontaneous
  Country: US (occurrence: US)
  Receive Date: 20141217
  Receipt Date: 20141217
  Transmission Date: 20150529
  Serious: No
  Sender: FDA-Public Use
  Company Number: US-GLAXOSMITHKLINE-A1046374A

PATIENT

DRUGS (1)
  1. VOTRIENT [Suspect]
     Active Substance: PAZOPANIB HYDROCHLORIDE
     Indication: PRODUCT USED FOR UNKNOWN INDICATION
     Dosage: 200 MG TABLETS, 4 TABLETS DAILY FOR 30 DAYS, 800 MG TOTAL DAILY DOSE
     Route: 048

REACTIONS (2)
  - Blood pressure increased [Unknown]
  - Rash pruritic [Unknown]
